FAERS Safety Report 10665036 (Version 14)
Quarter: 2016Q3

REPORT INFORMATION
  Report Type: Report from Study
  Country: US (occurrence: US)
  Receive Date: 20141219
  Receipt Date: 20160902
  Transmission Date: 20161109
  Serious: Yes (Death, Hospitalization)
  Sender: FDA-Public Use
  Company Number: US-ACTELION-A-US2014-109661

PATIENT
  Age: 57 Year
  Sex: Female

DRUGS (9)
  1. OPSUMIT [Suspect]
     Active Substance: MACITENTAN
     Indication: PULMONARY ARTERIAL HYPERTENSION
     Dosage: 10 MG, QD
     Route: 048
     Dates: start: 20141006, end: 20160805
  2. SPIRONOLACTONE. [Concomitant]
     Active Substance: SPIRONOLACTONE
     Dosage: 25 MG, BID
  3. ELIQUIS [Concomitant]
     Active Substance: APIXABAN
     Dosage: 25 MG, BID
  4. TREPROSTINIL DIOLAMIN [Suspect]
     Active Substance: TREPROSTINIL DIOLAMINE
     Indication: PRODUCT USED FOR UNKNOWN INDICATION
     Dosage: UNK
     Route: 065
     Dates: end: 20160226
  5. REVATIO [Concomitant]
     Active Substance: SILDENAFIL CITRATE
  6. OPSUMIT [Suspect]
     Active Substance: MACITENTAN
     Dosage: 10 MG, QD
     Route: 048
     Dates: start: 20141006
  7. TORSEMIDE. [Concomitant]
     Active Substance: TORSEMIDE
     Dosage: 20 MG, QD
  8. REMODULIN [Concomitant]
     Active Substance: TREPROSTINIL
     Indication: PULMONARY ARTERIAL HYPERTENSION
     Dosage: 17 NG/KG, PER MIN
     Route: 042
     Dates: start: 20160226, end: 20160802
  9. LOVENOX [Concomitant]
     Active Substance: ENOXAPARIN SODIUM

REACTIONS (15)
  - Transfusion [Unknown]
  - Condition aggravated [Unknown]
  - Dizziness [Unknown]
  - Cardiac failure chronic [Fatal]
  - Fluid overload [Unknown]
  - Pulmonary arterial hypertension [Not Recovered/Not Resolved]
  - Dyspepsia [Unknown]
  - Renal failure [Fatal]
  - Weight increased [Fatal]
  - Diarrhoea [Unknown]
  - Thrombosis [Unknown]
  - Oedema [Fatal]
  - Dyspnoea [Not Recovered/Not Resolved]
  - Decreased appetite [Unknown]
  - General physical health deterioration [Unknown]

NARRATIVE: CASE EVENT DATE: 20141209
